FAERS Safety Report 9814786 (Version 3)
Quarter: 2014Q1

REPORT INFORMATION
  Report Type: Report from Study
  Country: US (occurrence: US)
  Receive Date: 20140113
  Receipt Date: 20140319
  Transmission Date: 20141002
  Serious: Yes (Hospitalization)
  Sender: FDA-Public Use
  Company Number: US-DENDREON CORPORATION-2013PROUSA03444

PATIENT
  Age: 89 Year
  Sex: Male
  Weight: 68.27 kg

DRUGS (2)
  1. PROVENGE [Suspect]
     Indication: PROSTATE CANCER METASTATIC
     Dosage: 250 ML, SINGLE
     Route: 042
     Dates: start: 20131205, end: 20131205
  2. PROVENGE [Suspect]
     Dosage: 250 ML, SINGLE
     Route: 042
     Dates: start: 20131220, end: 20131220

REACTIONS (1)
  - Cardiac failure congestive [Recovered/Resolved]
